FAERS Safety Report 5252043-6 (Version None)
Quarter: 2007Q1

REPORT INFORMATION
  Report Type: 
  Country: None (occurrence: None)
  Receive Date: 20070226
  Receipt Date: 20070215
  Transmission Date: 20070707
  Serious: Yes (Hospitalization)
  Sender: FDA-Public Use
  Company Number: 2007SP003233

PATIENT
  Sex: Male

DRUGS (1)
  1. TEMODAL [Suspect]
     Indication: METASTATIC MALIGNANT MELANOMA
     Dosage: 200 MG QD
     Dates: start: 20070101, end: 20070201

REACTIONS (5)
  - ANAEMIA [None]
  - APLASIA [None]
  - INCORRECT DOSE ADMINISTERED [None]
  - NEUTROPENIA [None]
  - THROMBOCYTOPENIA [None]
